FAERS Safety Report 12437790 (Version 1)
Quarter: 2016Q2

REPORT INFORMATION
  Report Type: Spontaneous
  Country: US (occurrence: US)
  Receive Date: 20160606
  Receipt Date: 20160606
  Transmission Date: 20160815
  Serious: No
  Sender: FDA-Public Use
  Company Number: US-BAUSCH-BL-2015-016694

PATIENT
  Age: 70 Year
  Sex: Male
  Weight: 83.99 kg

DRUGS (3)
  1. ELIDEL [Suspect]
     Active Substance: PIMECROLIMUS
     Indication: PSORIASIS
     Dosage: APPLY DAILY
     Route: 061
     Dates: start: 201506, end: 201506
  2. ELIDEL [Suspect]
     Active Substance: PIMECROLIMUS
     Dosage: APPLY DAILY
     Route: 061
     Dates: start: 20150701, end: 20150702
  3. DILANTIN [Concomitant]
     Active Substance: PHENYTOIN
     Indication: SEIZURE
     Route: 048

REACTIONS (1)
  - Application site pain [Recovering/Resolving]

NARRATIVE: CASE EVENT DATE: 201506
